FAERS Safety Report 9683193 (Version 1)
Quarter: 2013Q4

REPORT INFORMATION
  Report Type: Spontaneous
  Country: US (occurrence: US)
  Receive Date: 20131112
  Receipt Date: 20131112
  Transmission Date: 20140711
  Serious: Yes (Other)
  Sender: FDA-Public Use
  Company Number: US-SA-2013SA116173

PATIENT
  Age: 56 Year
  Sex: Female

DRUGS (4)
  1. ZALTRAP [Suspect]
     Route: 065
  2. IRINOTECAN [Suspect]
     Route: 065
  3. 5-FU [Suspect]
     Route: 065
  4. FOLINIC ACID [Suspect]
     Route: 065

REACTIONS (3)
  - Dyspnoea [Unknown]
  - Skin discolouration [Unknown]
  - Oxygen saturation decreased [Unknown]
